FAERS Safety Report 7592239-1 (Version None)
Quarter: 2011Q3

REPORT INFORMATION
  Report Type: 
  Country: None (occurrence: None)
  Receive Date: 20110706
  Receipt Date: 20110623
  Transmission Date: 20111222
  Serious: Yes (Hospitalization, Other)
  Sender: FDA-Public Use
  Company Number: US-ELI_LILLY_AND_COMPANY-US201104007832

PATIENT
  Sex: Female

DRUGS (5)
  1. PREVACID [Concomitant]
  2. SIMVASTATIN [Concomitant]
  3. CITALOPRAM HYDROBROMIDE [Concomitant]
  4. FORTEO [Suspect]
     Dosage: 20 UG, QD
  5. FORTEO [Suspect]
     Indication: OSTEOPOROSIS
     Dosage: 20 UG, QD
     Route: 065
     Dates: start: 20110201

REACTIONS (13)
  - PALPITATIONS [None]
  - HEART RATE INCREASED [None]
  - PAIN [None]
  - MUSCULOSKELETAL DISCOMFORT [None]
  - DRUG DOSE OMISSION [None]
  - FALL [None]
  - DIZZINESS [None]
  - ASTHENIA [None]
  - HUMERUS FRACTURE [None]
  - BACK PAIN [None]
  - PELVIC DISCOMFORT [None]
  - INJECTION SITE HAEMATOMA [None]
  - SENSORY DISTURBANCE [None]
